FAERS Safety Report 21394702 (Version 3)
Quarter: 2022Q4

REPORT INFORMATION
  Report Type: Spontaneous
  Country: CA (occurrence: CA)
  Receive Date: 20220930
  Receipt Date: 20221206
  Transmission Date: 20230113
  Serious: Yes (Other)
  Sender: FDA-Public Use
  Company Number: CA-PFIZER INC-PV202200071827

PATIENT
  Age: 27 Year
  Sex: Male

DRUGS (2)
  1. RAPAMUNE [Suspect]
     Active Substance: SIROLIMUS
     Indication: Lymphangioleiomyomatosis
     Dosage: 1 MG, 2X/DAY
  2. TYLENOL [Concomitant]
     Active Substance: ACETAMINOPHEN
     Dosage: 2 DF, DAILY

REACTIONS (5)
  - Spinal cord compression [Unknown]
  - Spinal cord injury [Unknown]
  - Human epidermal growth factor receptor decreased [Unknown]
  - Off label use [Unknown]
  - Off label use [Unknown]
